FAERS Safety Report 16407954 (Version 1)
Quarter: 2019Q2

REPORT INFORMATION
  Report Type: Spontaneous
  Country: US (occurrence: US)
  Receive Date: 20190610
  Receipt Date: 20190610
  Transmission Date: 20190711
  Serious: No
  Sender: FDA-Public Use
  Company Number: US-AUROBINDO-AUR-APL-2018-051524

PATIENT
  Sex: Female

DRUGS (2)
  1. ACETAMINOPHEN AND CODEINE PHOSPHATE TABLETS USP, 300 MG/60 MG [Suspect]
     Active Substance: ACETAMINOPHEN\CODEINE PHOSPHATE
     Indication: ARTHRITIS
     Dosage: UNK
     Route: 065
  2. ACETAMINOPHEN AND CODEINE PHOSPHATE TABLETS USP, 300 MG/60 MG [Suspect]
     Active Substance: ACETAMINOPHEN\CODEINE PHOSPHATE
     Dosage: UNK
     Route: 065

REACTIONS (1)
  - Drug ineffective [Unknown]
